FAERS Safety Report 9727666 (Version 1)
Quarter: 2013Q4

REPORT INFORMATION
  Report Type: Other
  Country: GB (occurrence: GB)
  Receive Date: 20131203
  Receipt Date: 20131203
  Transmission Date: 20140711
  Serious: Yes (Other)
  Sender: FDA-Public Use
  Company Number: GB-TAKEDA-2013TJP003146

PATIENT
  Sex: 0

DRUGS (2)
  1. LANSOPRAZOLE [Suspect]
     Dosage: 15 MG, QD
     Route: 048
     Dates: start: 2012, end: 20131016
  2. QUININE SULPHATE [Concomitant]

REACTIONS (5)
  - Atrioventricular block second degree [Recovered/Resolved]
  - Bradycardia [Recovered/Resolved]
  - Atrioventricular block second degree [Recovered/Resolved]
  - Atrioventricular block complete [Recovered/Resolved]
  - Cardiac failure [Unknown]
